FAERS Safety Report 9606752 (Version 1)
Quarter: 2013Q4

REPORT INFORMATION
  Report Type: Spontaneous
  Country: US (occurrence: US)
  Receive Date: 20131008
  Receipt Date: 20131008
  Transmission Date: 20140711
  Serious: No
  Sender: FDA-Public Use
  Company Number: US-AMGEN-USASP2013063145

PATIENT
  Age: 67 Year
  Sex: Female

DRUGS (2)
  1. PROLIA [Suspect]
     Indication: PRODUCT USED FOR UNKNOWN INDICATION
     Dosage: UNK
     Route: 065
     Dates: start: 201305
  2. VITAMIN D                          /00107901/ [Concomitant]
     Dosage: 2000 IU, QD

REACTIONS (4)
  - Blood pressure increased [Unknown]
  - Vitamin D decreased [Unknown]
  - Blood potassium increased [Unknown]
  - Hypoaesthesia [Unknown]
